FAERS Safety Report 8281072-3 (Version None)
Quarter: 2012Q2

REPORT INFORMATION
  Report Type: 
  Country: None (occurrence: None)
  Receive Date: 20120412
  Receipt Date: 20120330
  Transmission Date: 20120825
  Serious: Yes (Hospitalization)
  Sender: FDA-Public Use
  Company Number: US-MYLANLABS-2012S1007176

PATIENT
  Age: 9 Month
  Sex: Male
  Weight: 9 kg

DRUGS (2)
  1. VENLAFAXINE [Suspect]
     Indication: ACCIDENTAL EXPOSURE
     Dosage: EXTENDED RELEASE
     Route: 048
  2. FLUORIDE /00168201/ [Concomitant]
     Dosage: 0.25MG DAILY
     Route: 065

REACTIONS (12)
  - RASH MACULAR [None]
  - PARKINSONIAN REST TREMOR [None]
  - TREMOR [None]
  - AGITATION [None]
  - EYE MOVEMENT DISORDER [None]
  - DEPRESSED LEVEL OF CONSCIOUSNESS [None]
  - ACCIDENTAL EXPOSURE [None]
  - PRURITUS [None]
  - DRUG SCREEN FALSE POSITIVE [None]
  - IRRITABILITY [None]
  - MYDRIASIS [None]
  - FLUSHING [None]
